FAERS Safety Report 19459827 (Version 1)
Quarter: 2021Q2

REPORT INFORMATION
  Report Type: Spontaneous
  Country: US (occurrence: US)
  Receive Date: 20210625
  Receipt Date: 20210625
  Transmission Date: 20210717
  Serious: No
  Sender: FDA-Public Use
  Company Number: US-JNJFOC-20210622951

PATIENT
  Age: 59 Year
  Sex: Female
  Weight: 108.8 kg

DRUGS (17)
  1. INVOKAMET [Suspect]
     Active Substance: CANAGLIFLOZIN\METFORMIN HYDROCHLORIDE
     Indication: PRODUCT USED FOR UNKNOWN INDICATION
     Route: 048
  2. ATORVASTATIN [Concomitant]
     Active Substance: ATORVASTATIN
  3. KORLYM [Suspect]
     Active Substance: MIFEPRISTONE
     Route: 048
     Dates: start: 202011
  4. FUROSEMIDE. [Concomitant]
     Active Substance: FUROSEMIDE
     Route: 065
  5. ARMOUR THYROID [Concomitant]
     Active Substance: THYROID, PORCINE
  6. VALTREX [Concomitant]
     Active Substance: VALACYCLOVIR HYDROCHLORIDE
  7. KORLYM [Suspect]
     Active Substance: MIFEPRISTONE
     Route: 048
  8. EFFEXOR [Concomitant]
     Active Substance: VENLAFAXINE HYDROCHLORIDE
     Route: 065
  9. VICTOZA [Concomitant]
     Active Substance: LIRAGLUTIDE
  10. LOSARTAN. [Concomitant]
     Active Substance: LOSARTAN
     Route: 065
  11. LYRICA [Concomitant]
     Active Substance: PREGABALIN
     Route: 065
  12. TIZANIDINE. [Concomitant]
     Active Substance: TIZANIDINE
  13. KORLYM [Suspect]
     Active Substance: MIFEPRISTONE
     Indication: CUSHING^S SYNDROME
     Route: 048
     Dates: start: 20201022, end: 202011
  14. KORLYM [Suspect]
     Active Substance: MIFEPRISTONE
     Route: 048
  15. LEVEMIR [Concomitant]
     Active Substance: INSULIN DETEMIR
     Route: 065
  16. NORCO [Concomitant]
     Active Substance: ACETAMINOPHEN\HYDROCODONE BITARTRATE
  17. XIGDUO XR [Concomitant]
     Active Substance: DAPAGLIFLOZIN PROPANEDIOL\METFORMIN HYDROCHLORIDE

REACTIONS (2)
  - Fatigue [Recovering/Resolving]
  - Blood urine present [Recovered/Resolved]
